FAERS Safety Report 16142186 (Version 1)
Quarter: 2019Q2

REPORT INFORMATION
  Report Type: Spontaneous
  Country: US (occurrence: US)
  Receive Date: 20190401
  Receipt Date: 20190401
  Transmission Date: 20190711
  Serious: No
  Sender: FDA-Public Use
  Company Number: US-TEVA-2019-US-1021983

PATIENT
  Sex: Female

DRUGS (2)
  1. BUSPIRONE HYDROCHLORIDE TABLETS [Suspect]
     Active Substance: BUSPIRONE HYDROCHLORIDE
     Indication: ANXIETY
  2. BUSPIRONE HYDROCHLORIDE TABLETS [Suspect]
     Active Substance: BUSPIRONE HYDROCHLORIDE
     Indication: POST-TRAUMATIC STRESS DISORDER
     Route: 065
     Dates: start: 20190225, end: 20190301

REACTIONS (4)
  - Road traffic accident [Unknown]
  - Personality disorder [Recovering/Resolving]
  - Drug ineffective [Unknown]
  - Impaired driving ability [Recovering/Resolving]
